FAERS Safety Report 24146891 (Version 1)
Quarter: 2024Q3

REPORT INFORMATION
  Report Type: Spontaneous
  Country: UA (occurrence: UA)
  Receive Date: 20240729
  Receipt Date: 20240729
  Transmission Date: 20241017
  Serious: Yes (Other)
  Sender: REGENERON
  Company Number: UA-BAYER-2024A108025

PATIENT

DRUGS (2)
  1. EYLEA [Suspect]
     Active Substance: AFLIBERCEPT
     Indication: Macular oedema
     Dosage: UNK, ONCE, LEFT EYE (TREATED IN BOTH EYES); SOLUTION FOR INJECTION; 40 MG/ML
     Dates: start: 202403, end: 202403
  2. EYLEA [Suspect]
     Active Substance: AFLIBERCEPT
     Dosage: UNK, ONCE, RIGHT EYE; SOLUTION FOR INJECTION; 40 MG/ML
     Dates: start: 202406, end: 202406

REACTIONS (4)
  - Angioedema [Unknown]
  - Angioedema [Unknown]
  - Hypersensitivity [Unknown]
  - Hypersensitivity [Unknown]

NARRATIVE: CASE EVENT DATE: 20240301
